FAERS Safety Report 6627956-0 (Version None)
Quarter: 2010Q1

REPORT INFORMATION
  Report Type: 
  Country: None (occurrence: None)
  Receive Date: 20100311
  Receipt Date: 20090417
  Transmission Date: 20100710
  Serious: No
  Sender: FDA-Public Use
  Company Number: A0779341A

PATIENT
  Age: 33 Year
  Sex: Female

DRUGS (1)
  1. NICORETTE (MINT) [Suspect]
     Indication: SMOKING CESSATION THERAPY
     Route: 002
     Dates: start: 20090416, end: 20090416

REACTIONS (3)
  - OROPHARYNGEAL PAIN [None]
  - THERMAL BURN [None]
  - VOMITING [None]
